FAERS Safety Report 17191470 (Version 2)
Quarter: 2020Q1

REPORT INFORMATION
  Report Type: Spontaneous
  Country: US (occurrence: US)
  Receive Date: 20191223
  Receipt Date: 20200124
  Transmission Date: 20200409
  Serious: Yes (Other)
  Sender: FDA-Public Use
  Company Number: US-PFIZER INC-2019547956

PATIENT
  Age: 76 Year
  Sex: Female
  Weight: 130.63 kg

DRUGS (3)
  1. ATIVAN [Suspect]
     Active Substance: LORAZEPAM
     Dosage: UNK
  2. LORAZEPAM. [Suspect]
     Active Substance: LORAZEPAM
     Indication: ANXIETY
     Dosage: UNK
  3. LORAZEPAM. [Suspect]
     Active Substance: LORAZEPAM
     Dosage: 1 MG, AS NEEDED (1MG TWICE A DAY BY MOUTH, 3RD DOSE AS NEEDED)
     Route: 048
     Dates: start: 2019

REACTIONS (1)
  - Drug ineffective [Unknown]
